FAERS Safety Report 13286184 (Version 1)
Quarter: 2017Q1

REPORT INFORMATION
  Report Type: Spontaneous
  Country: US (occurrence: US)
  Receive Date: 20170302
  Receipt Date: 20170302
  Transmission Date: 20170428
  Serious: No
  Sender: FDA-Public Use
  Company Number: US-ALLERGAN-1702694US

PATIENT

DRUGS (1)
  1. VIIBRYD [Suspect]
     Active Substance: VILAZODONE HYDROCHLORIDE
     Indication: PRODUCT USED FOR UNKNOWN INDICATION
     Dosage: 40 MG, UNK
     Route: 065

REACTIONS (7)
  - Visual impairment [Unknown]
  - Performance fear [Unknown]
  - Movement disorder [Unknown]
  - Thinking abnormal [Unknown]
  - Feeling abnormal [Unknown]
  - Nausea [Unknown]
  - Seizure [Unknown]
